FAERS Safety Report 9362970 (Version 1)
Quarter: 2013Q2

REPORT INFORMATION
  Report Type: Spontaneous
  Country: US (occurrence: US)
  Receive Date: 20130624
  Receipt Date: 20130624
  Transmission Date: 20140414
  Serious: Yes (Other)
  Sender: FDA-Public Use
  Company Number: US-AMGEN-USASP2013043470

PATIENT
  Age: 65 Year
  Sex: Male

DRUGS (17)
  1. ENBREL [Suspect]
     Indication: PRODUCT USED FOR UNKNOWN INDICATION
     Dosage: UNK
     Route: 065
  2. HUMIRA [Suspect]
     Indication: RHEUMATOID ARTHRITIS
     Dosage: 40 MG, Q2WK
     Dates: start: 20130408
  3. METHOTREXATE [Concomitant]
     Indication: RHEUMATOID ARTHRITIS
     Dosage: 2.5 MG, UNK
  4. PREDNISONE [Concomitant]
     Indication: RHEUMATOID ARTHRITIS
     Dosage: 10 MG, QD
  5. QUINAPRIL [Concomitant]
     Indication: HYPERTENSION
     Dosage: 40 MG, QD
  6. NORVASC [Concomitant]
     Indication: HYPERTENSION
     Dosage: 5 - 10 MG, AS NECESSARY
  7. FUROSEMIDE [Concomitant]
     Dosage: 40 MG, QD
  8. POTASSIUM [Concomitant]
     Dosage: 20 MEQ, QD
  9. FOLIC ACID [Concomitant]
     Dosage: UNK UNK, AS NECESSARY
  10. OPANA [Concomitant]
     Indication: PAIN
     Dosage: 30 MG, 2 IN 1 D
  11. OPANA [Concomitant]
     Dosage: 10 MG, 4 IN 1 D AS NECESSARY
  12. FLAXSEED OIL [Concomitant]
     Dosage: UNK UNK, QD
  13. KRILL OMEGA RED OIL [Concomitant]
     Dosage: UNK UNK, QD
  14. VITAMIN C                          /00008001/ [Concomitant]
     Dosage: UNK
  15. VITAMIN D                          /00107901/ [Concomitant]
     Dosage: 8000 MG, QD
  16. ASTAXANTHIN [Concomitant]
     Indication: SUPPLEMENTATION THERAPY
     Dosage: 1 IN 1 D
  17. CURAMIN [Concomitant]
     Indication: SUPPLEMENTATION THERAPY
     Dosage: 1 IN 1 D

REACTIONS (16)
  - Diverticulitis [Unknown]
  - Cardiac failure congestive [Unknown]
  - Unevaluable event [Unknown]
  - Incorrect route of drug administration [Unknown]
  - Arthralgia [Unknown]
  - Injection site bruising [Unknown]
  - Nausea [Unknown]
  - Sinus disorder [Unknown]
  - Musculoskeletal pain [Unknown]
  - Dizziness [Unknown]
  - Pain [Unknown]
  - Contusion [Unknown]
  - Mass [Unknown]
  - Pallor [Unknown]
  - Oedema peripheral [Unknown]
  - Injection site pain [Unknown]
